FAERS Safety Report 7249014-7 (Version None)
Quarter: 2011Q1

REPORT INFORMATION
  Report Type: 
  Country: None (occurrence: None)
  Receive Date: 20110128
  Receipt Date: 20101119
  Transmission Date: 20110831
  Serious: Yes (Hospitalization)
  Sender: FDA-Public Use
  Company Number: US-BAYER-201031133NA

PATIENT
  Sex: Female
  Weight: 81.633 kg

DRUGS (19)
  1. YAZ [Suspect]
     Indication: PRODUCT USED FOR UNKNOWN INDICATION
     Route: 048
     Dates: start: 20080701, end: 20100215
  2. FLUTICASONE PROPIONATE [Concomitant]
     Dates: start: 20040101
  3. LEXAPRO [Concomitant]
  4. LEVAQUIN [Concomitant]
  5. FLUCONAZOLE [Concomitant]
  6. LIPITOR [Concomitant]
     Dates: start: 20020101
  7. ADVIL [Concomitant]
  8. ALEVE [Concomitant]
  9. ASTELIN [Concomitant]
     Dates: start: 20040101
  10. OMEPRAZOLE [Concomitant]
  11. LIPITOR [Concomitant]
  12. DIFLORASONE DIACETATE [Concomitant]
  13. SINGULAIR [Concomitant]
  14. BETAMETHASONE [Concomitant]
  15. ANTIBIOTICS [Concomitant]
  16. ASTELIN [Concomitant]
  17. ASCORBIC ACID [Concomitant]
  18. ALLEGRA [Concomitant]
     Dates: start: 20040101
  19. FLUTICASONE PROPIONATE [Concomitant]

REACTIONS (5)
  - CHOLELITHIASIS [None]
  - NAUSEA [None]
  - ABDOMINAL PAIN UPPER [None]
  - CHOLECYSTITIS CHRONIC [None]
  - GALLBLADDER CHOLESTEROLOSIS [None]
